FAERS Safety Report 17628590 (Version 1)
Quarter: 2020Q2

REPORT INFORMATION
  Report Type: Spontaneous
  Country: DE (occurrence: DE)
  Receive Date: 20200406
  Receipt Date: 20200406
  Transmission Date: 20200713
  Serious: Yes (Other)
  Sender: FDA-Public Use
  Company Number: DE-009507513-1804DEU010674

PATIENT
  Age: 54 Year
  Sex: Female

DRUGS (1)
  1. KEYTRUDA [Suspect]
     Active Substance: PEMBROLIZUMAB
     Indication: METASTATIC MALIGNANT MELANOMA
     Dosage: UNK
     Dates: start: 201706, end: 2019

REACTIONS (3)
  - Pneumonia [Recovered/Resolved]
  - Melanoma recurrent [Unknown]
  - Hypophysitis [Recovered/Resolved]

NARRATIVE: CASE EVENT DATE: 201712
